FAERS Safety Report 6330662-3 (Version None)
Quarter: 2009Q3

REPORT INFORMATION
  Report Type: 
  Country: None (occurrence: None)
  Receive Date: 20090827
  Receipt Date: 20090821
  Transmission Date: 20100115
  Serious: Yes (Other)
  Sender: FDA-Public Use
  Company Number: US-AVENTIS-200917527US

PATIENT
  Sex: Male
  Weight: 61.23 kg

DRUGS (11)
  1. LASIX [Suspect]
     Dates: start: 20090419
  2. LASIX [Suspect]
     Dates: start: 20090419
  3. LIPITOR [Suspect]
     Dosage: DOSE: UNK
     Dates: start: 20090419, end: 20090628
  4. LIPITOR [Suspect]
     Indication: HIGH DENSITY LIPOPROTEIN DECREASED
     Dosage: DOSE: UNK
     Dates: start: 20090419, end: 20090628
  5. SIMVASTATIN [Suspect]
     Dates: start: 20090629
  6. SIMVASTATIN [Suspect]
     Indication: HIGH DENSITY LIPOPROTEIN DECREASED
     Dates: start: 20090629
  7. COREG [Concomitant]
     Dosage: DOSE: UNK
  8. LISINOPRIL [Concomitant]
     Dosage: DOSE: UNK
  9. ASPIRIN [Concomitant]
     Dosage: DOSE: UNK
  10. PROVIGIL [Concomitant]
     Dosage: DOSE: UNK
  11. BETASERON                          /00596809/ [Concomitant]
     Dosage: DOSE: UNK

REACTIONS (7)
  - ARTHRALGIA [None]
  - KIDNEY INFECTION [None]
  - LABORATORY TEST ABNORMAL [None]
  - MUSCLE SPASMS [None]
  - MUSCLE STRAIN [None]
  - MYALGIA [None]
  - THYROID DISORDER [None]
